FAERS Safety Report 13946028 (Version 1)
Quarter: 2017Q3

REPORT INFORMATION
  Report Type: Spontaneous
  Country: CA (occurrence: CA)
  Receive Date: 20170907
  Receipt Date: 20170907
  Transmission Date: 20171128
  Serious: Yes (Hospitalization)
  Sender: FDA-Public Use
  Company Number: CA-JNJFOC-20170829204

PATIENT
  Sex: Female

DRUGS (1)
  1. APAP [Suspect]
     Active Substance: ACETAMINOPHEN
     Indication: PRODUCT USED FOR UNKNOWN INDICATION
     Dosage: 24 TABLETS OF 500MG OF APAP OVER A 48 HOUR PERIOD
     Route: 048

REACTIONS (2)
  - Overdose [Unknown]
  - Exposure during pregnancy [Unknown]
